FAERS Safety Report 4473902-8 (Version None)
Quarter: 2004Q4

REPORT INFORMATION
  Report Type: 
  Country: None (occurrence: None)
  Receive Date: 20041008
  Receipt Date: 20041008
  Transmission Date: 20050328
  Serious: Yes (Other)
  Sender: FDA-Public Use
  Company Number: None

PATIENT
  Age: 26 Year
  Sex: Female
  Weight: 63.5036 kg

DRUGS (4)
  1. VIOXX [Suspect]
     Indication: ARTHRALGIA
     Dosage: 50 MG 1-2 /DAY ORAL
     Route: 048
     Dates: start: 19980317, end: 20030515
  2. VIOXX [Suspect]
     Indication: MUSCULOSKELETAL STIFFNESS
     Dosage: 50 MG 1-2 /DAY ORAL
     Route: 048
     Dates: start: 19980317, end: 20030515
  3. VIOXX [Suspect]
     Indication: ROTATOR CUFF SYNDROME
     Dosage: 50 MG 1-2 /DAY ORAL
     Route: 048
     Dates: start: 19980317, end: 20030515
  4. VIOXX [Suspect]
     Indication: SWELLING
     Dosage: 50 MG 1-2 /DAY ORAL
     Route: 048
     Dates: start: 19980317, end: 20030515

REACTIONS (3)
  - ARRHYTHMIA [None]
  - DYSPNOEA [None]
  - HEART RATE INCREASED [None]
